FAERS Safety Report 5190602-X (Version None)
Quarter: 2006Q4

REPORT INFORMATION
  Report Type: 
  Country: None (occurrence: None)
  Receive Date: 20061222
  Receipt Date: 20060913
  Transmission Date: 20070319
  Serious: No
  Sender: FDA-Public Use
  Company Number: US-BRISTOL-MYERS SQUIBB COMPANY-13507702

PATIENT
  Age: 69 Year
  Sex: Female
  Weight: 45 kg

DRUGS (12)
  1. ORENCIA [Suspect]
     Indication: RHEUMATOID ARTHRITIS
     Route: 042
  2. METHOTREXATE [Concomitant]
  3. LUNESTA [Concomitant]
  4. TRAZODONE HCL [Concomitant]
  5. ELAVIL [Concomitant]
  6. NEURONTIN [Concomitant]
  7. VITAMIN CAP [Concomitant]
  8. CELEBREX [Concomitant]
     Indication: RHEUMATOID ARTHRITIS
     Route: 042
  9. GLUCOSAMINE [Concomitant]
  10. CHONDROITIN [Concomitant]
  11. METHYLSULFONYLMETHANE [Concomitant]
  12. FISH OIL [Concomitant]

REACTIONS (1)
  - INFUSION RELATED REACTION [None]
